FAERS Safety Report 6418966-7 (Version None)
Quarter: 2009Q4

REPORT INFORMATION
  Report Type: 
  Country: None (occurrence: None)
  Receive Date: 20091029
  Receipt Date: 20091020
  Transmission Date: 20100525
  Serious: Yes (Other)
  Sender: FDA-Public Use
  Company Number: US-BAYER-200924388NA

PATIENT
  Age: 39 Year
  Sex: Female
  Weight: 59 kg

DRUGS (3)
  1. MIRENA [Suspect]
     Indication: CONTRACEPTION
     Route: 015
     Dates: start: 20090519, end: 20090612
  2. CYMBALTA [Concomitant]
     Route: 048
  3. VITAMINS [Concomitant]

REACTIONS (5)
  - ABDOMINAL PAIN LOWER [None]
  - CONVULSION [None]
  - LOSS OF CONSCIOUSNESS [None]
  - PRESYNCOPE [None]
  - PROCEDURAL PAIN [None]
